FAERS Safety Report 9387191 (Version 1)
Quarter: 2013Q3

REPORT INFORMATION
  Report Type: Spontaneous
  Country: US (occurrence: None)
  Receive Date: 20130703
  Receipt Date: 20130703
  Transmission Date: 20140515
  Serious: Yes (Other)
  Sender: FDA-Public Use
  Company Number: None

PATIENT
  Age: 79 Year
  Sex: Female
  Weight: 74.39 kg

DRUGS (12)
  1. DULERA [Suspect]
     Indication: CHRONIC OBSTRUCTIVE PULMONARY DISEASE
     Dosage: 200MG/5MG 2 PUFFS Q 12 HOURS Q 12 HOURS INHALER WITH ACTUOCTOR SPACER
     Route: 055
     Dates: start: 20121101
  2. DULERA [Suspect]
     Indication: ASTHMA
     Dosage: 200MG/5MG 2 PUFFS Q 12 HOURS Q 12 HOURS INHALER WITH ACTUOCTOR SPACER
     Route: 055
     Dates: start: 20121101
  3. AMLODIPINE [Concomitant]
  4. LISINOPRIL [Concomitant]
  5. PROAIR (ALBUTEROL) [Concomitant]
  6. LEVOTHYROXINE [Concomitant]
  7. ASA [Concomitant]
  8. CALCIUM [Concomitant]
  9. VITB [Concomitant]
  10. ASCORBIC-ACID [Concomitant]
  11. VIT D3 [Concomitant]
  12. FOLIC ACID [Concomitant]

REACTIONS (3)
  - Tooth fracture [None]
  - Oedema [None]
  - Oedema peripheral [None]
